FAERS Safety Report 7893312-0 (Version None)
Quarter: 2011Q4

REPORT INFORMATION
  Report Type: 
  Country: None (occurrence: None)
  Receive Date: 20111104
  Receipt Date: 20111024
  Transmission Date: 20120403
  Serious: Yes (Other)
  Sender: FDA-Public Use
  Company Number: JP-PFIZER INC-2011240116

PATIENT
  Age: 77 Year
  Sex: Male

DRUGS (17)
  1. OPALMON [Concomitant]
     Dosage: UNK
     Dates: start: 20110914
  2. CARVEDILOL [Concomitant]
     Indication: MYOCARDIAL ISCHAEMIA
  3. DIOVAN [Concomitant]
     Dosage: UNK
     Route: 048
     Dates: start: 20110319, end: 20110713
  4. ALDOMET [Concomitant]
     Indication: HYPERLIPIDAEMIA
  5. PLAVIX [Concomitant]
     Indication: RETINAL ARTERY OCCLUSION
     Dosage: UNK
     Dates: start: 20110525
  6. DIGOXIN [Concomitant]
     Dosage: UNK
     Route: 048
     Dates: start: 20110520
  7. EPLERENONE [Concomitant]
     Indication: MYOCARDIAL ISCHAEMIA
  8. CARVEDILOL [Concomitant]
     Indication: HYPERLIPIDAEMIA
  9. CARVEDILOL [Concomitant]
     Indication: HYPERTENSION
     Dosage: UNK
     Route: 048
     Dates: start: 20100703
  10. ALDOMET [Concomitant]
     Indication: MYOCARDIAL ISCHAEMIA
  11. ASPIRIN [Concomitant]
     Indication: MYOCARDIAL ISCHAEMIA
     Dosage: UNK
     Route: 048
     Dates: start: 20060522
  12. ASPIRIN [Concomitant]
     Indication: HYPERLIPIDAEMIA
  13. LIPITOR [Suspect]
     Dosage: 5 MG, DAILY
     Route: 048
     Dates: start: 20110615
  14. EPLERENONE [Concomitant]
     Indication: HYPERLIPIDAEMIA
  15. CLINORIL [Concomitant]
     Dosage: UNK
     Dates: start: 20110811
  16. EPLERENONE [Concomitant]
     Indication: HYPERTENSION
     Dosage: UNK
     Route: 048
     Dates: start: 20100703
  17. ALDOMET [Concomitant]
     Indication: HYPERTENSION
     Dosage: UNK
     Dates: start: 20110525

REACTIONS (1)
  - MUSCULAR WEAKNESS [None]
